FAERS Safety Report 11778800 (Version 1)
Quarter: 2015Q4

REPORT INFORMATION
  Report Type: Not Available
  Country: IT (occurrence: IT)
  Receive Date: 20151125
  Receipt Date: 20151125
  Transmission Date: 20160304
  Serious: Yes (Hospitalization)
  Sender: FDA-Public Use
  Company Number: IT-PURDUE PHARMA-GBR-2015-0032250

PATIENT
  Age: 78 Year
  Sex: Male

DRUGS (9)
  1. SIMVASTATIN. [Concomitant]
     Active Substance: SIMVASTATIN
  2. TENORMIN [Concomitant]
     Active Substance: ATENOLOL
  3. TARGIN COMPRESSA A RILASCIO PROLUNGATO CONTIENE 10MG/5MG [Suspect]
     Active Substance: NALOXONE HYDROCHLORIDE\OXYCODONE HYDROCHLORIDE
     Indication: NEURALGIA
     Dosage: 3 DF, DAILY
     Route: 048
     Dates: start: 20151027, end: 20151103
  4. PRITOR                             /01102601/ [Concomitant]
  5. FEBUXOSTAT. [Concomitant]
     Active Substance: FEBUXOSTAT
  6. CARDIOASPIRIN [Concomitant]
     Active Substance: ASPIRIN
  7. LINAGLIPTIN [Concomitant]
     Active Substance: LINAGLIPTIN
  8. GLIQUIDONE [Concomitant]
     Active Substance: GLIQUIDONE
     Dosage: 30 MG, UNK
  9. DICLOREUM [Concomitant]
     Active Substance: DICLOFENAC SODIUM
     Dosage: 100 MG, UNK
     Route: 048

REACTIONS (2)
  - Agitation [Recovering/Resolving]
  - Confusional state [Recovering/Resolving]

NARRATIVE: CASE EVENT DATE: 20151103
